FAERS Safety Report 14890168 (Version 2)
Quarter: 2018Q3

REPORT INFORMATION
  Report Type: Spontaneous
  Country: US (occurrence: US)
  Receive Date: 20180514
  Receipt Date: 20180709
  Transmission Date: 20181010
  Serious: No
  Sender: FDA-Public Use
  Company Number: US-PFIZER INC-2018191980

PATIENT
  Age: 54 Year
  Sex: Female
  Weight: 77 kg

DRUGS (1)
  1. INLYTA [Suspect]
     Active Substance: AXITINIB
     Dosage: 3 MG, 2X/DAY (MORNING AND NIGHT)

REACTIONS (7)
  - Fatigue [Unknown]
  - Dysphagia [Unknown]
  - Eating disorder [Unknown]
  - Nausea [Unknown]
  - Speech disorder [Unknown]
  - Weight decreased [Unknown]
  - Dysphonia [Unknown]
